FAERS Safety Report 12121202 (Version 1)
Quarter: 2016Q1

REPORT INFORMATION
  Report Type: Spontaneous
  Country: US (occurrence: US)
  Receive Date: 20160226
  Receipt Date: 20160226
  Transmission Date: 20160526
  Serious: No
  Sender: FDA-Public Use
  Company Number: US-ALLERGAN-1103273US

PATIENT
  Age: 41 Year
  Sex: Female

DRUGS (3)
  1. REFRESH OPTIVE [Suspect]
     Active Substance: CARBOXYMETHYLCELLULOSE SODIUM\GLYCERIN
     Indication: POSTOPERATIVE CARE
     Dosage: 2 GTT, Q1HR
     Route: 047
     Dates: start: 20110303, end: 20110308
  2. ZYMAXID [Concomitant]
     Active Substance: GATIFLOXACIN
     Indication: KERATOMILEUSIS
     Dosage: 1 GTT, QID
     Route: 047
     Dates: start: 20110228
  3. PRED FORTE [Concomitant]
     Active Substance: PREDNISOLONE ACETATE
     Indication: POSTOPERATIVE CARE
     Dosage: 1 GTT, QID
     Route: 047
     Dates: start: 20110303

REACTIONS (1)
  - Eye pain [Recovered/Resolved]
